FAERS Safety Report 6497949-5 (Version None)
Quarter: 2009Q4

REPORT INFORMATION
  Report Type: 
  Country: None (occurrence: None)
  Receive Date: 20091215
  Receipt Date: 20091203
  Transmission Date: 20100525
  Serious: Yes (Other)
  Sender: FDA-Public Use
  Company Number: AU-PFIZER INC-2009305834

PATIENT
  Sex: Female

DRUGS (1)
  1. CLEOCIN [Suspect]
     Indication: WISDOM TEETH REMOVAL
     Dosage: UNK
     Dates: start: 20091127, end: 20091130

REACTIONS (4)
  - BACK PAIN [None]
  - DIARRHOEA [None]
  - DYSPNOEA [None]
  - MUSCLE SPASMS [None]
